FAERS Safety Report 19735218 (Version 1)
Quarter: 2021Q3

REPORT INFORMATION
  Report Type: Spontaneous
  Country: JP (occurrence: JP)
  Receive Date: 20210823
  Receipt Date: 20210823
  Transmission Date: 20211014
  Serious: Yes (Other)
  Sender: FDA-Public Use
  Company Number: JP-EPICPHARMA-JP-2021EPCLIT00915

PATIENT
  Age: 65 Year
  Sex: Male

DRUGS (3)
  1. METHADONE HYDROCHLORIDE. [Suspect]
     Active Substance: METHADONE HYDROCHLORIDE
     Indication: CHEST PAIN
     Route: 065
  2. OXYCODONE [Suspect]
     Active Substance: OXYCODONE
     Route: 048
  3. OXYCODONE [Suspect]
     Active Substance: OXYCODONE
     Indication: CHEST PAIN
     Route: 065

REACTIONS (3)
  - Delirium [Unknown]
  - Drug interaction [Unknown]
  - Drug ineffective [Unknown]
